FAERS Safety Report 5461175-9 (Version None)
Quarter: 2007Q3

REPORT INFORMATION
  Report Type: 
  Country: None (occurrence: None)
  Receive Date: 20070920
  Receipt Date: 20060801
  Transmission Date: 20080115
  Serious: No
  Sender: FDA-Public Use
  Company Number: A0614121A

PATIENT
  Age: 22 Year

DRUGS (1)
  1. ABREVA [Suspect]
     Indication: DRUG USE FOR UNKNOWN INDICATION

REACTIONS (1)
  - DRUG INEFFECTIVE [None]
